FAERS Safety Report 4726056-4 (Version None)
Quarter: 2005Q3

REPORT INFORMATION
  Report Type: 
  Country: None (occurrence: None)
  Receive Date: 20050725
  Receipt Date: 20050718
  Transmission Date: 20060218
  Serious: Yes (Hospitalization)
  Sender: FDA-Public Use
  Company Number: HQWYE148615JUL04

PATIENT
  Age: 29 Year
  Sex: Female

DRUGS (4)
  1. EFFEXOR XR [Suspect]
     Indication: ANXIETY
     Dosage: 75 MG 1 X PER 1 DAY ORAL
     Route: 048
     Dates: start: 20040101, end: 20040401
  2. EFFEXOR XR [Suspect]
     Indication: DEPRESSION
     Dosage: 75 MG 1 X PER 1 DAY ORAL
     Route: 048
     Dates: start: 20040101, end: 20040401
  3. EFFEXOR XR [Suspect]
     Indication: TREMOR
     Dosage: 75 MG 1 X PER 1 DAY ORAL
     Route: 048
     Dates: start: 20040101, end: 20040401
  4. AMITRIL                       (AMITRIPTYLINE HYDROCHLORIDE) [Concomitant]

REACTIONS (8)
  - DIZZINESS [None]
  - DRY MOUTH [None]
  - HYPOREFLEXIA [None]
  - NAUSEA [None]
  - OPTIC NEURITIS [None]
  - SOMNOLENCE [None]
  - VISUAL DISTURBANCE [None]
  - WEIGHT DECREASED [None]
